FAERS Safety Report 22267597 (Version 1)
Quarter: 2023Q2

REPORT INFORMATION
  Report Type: Report from Study
  Country: DK (occurrence: DK)
  Receive Date: 20230430
  Receipt Date: 20230430
  Transmission Date: 20230721
  Serious: Yes (Hospitalization)
  Sender: FDA-Public Use
  Company Number: DK-AUROBINDO-AUR-APL-2023-032088

PATIENT
  Age: 76 Year
  Sex: Female

DRUGS (6)
  1. LAMOTRIGINE [Suspect]
     Active Substance: LAMOTRIGINE
     Indication: Prophylaxis
     Dosage: 300 MILLIGRAM (TN MEDICATION 90 DAYS POST LOADING)
     Route: 065
  2. GABAPENTIN [Suspect]
     Active Substance: GABAPENTIN
     Indication: Prophylaxis
     Dosage: 600 MILLIGRAM (TN MEDICATION BEFORE LOADING)
     Route: 065
  3. GABAPENTIN [Suspect]
     Active Substance: GABAPENTIN
     Dosage: 200 MILLIGRAM (TN MEDICATION 90 DAYS POST LOADING)
     Route: 065
  4. PREGABALIN [Suspect]
     Active Substance: PREGABALIN
     Indication: Prophylaxis
     Dosage: 450 MILLIGRAM (TN MEDICATION BEFORE LOADING)
     Route: 065
  5. AMITRIPTYLINE [Suspect]
     Active Substance: AMITRIPTYLINE
     Indication: Prophylaxis
     Dosage: 20 MILLIGRAM (TN MEDICATION BEFORE LOADING)
     Route: 065
  6. PHENYTOIN [Suspect]
     Active Substance: PHENYTOIN
     Indication: Prophylaxis
     Dosage: 150 MILLIGRAM (TN MEDICATION 90 DAYS POST LOADING),
     Route: 065

REACTIONS (1)
  - Drug ineffective [Unknown]
